FAERS Safety Report 9894827 (Version 1)
Quarter: 2014Q1

REPORT INFORMATION
  Report Type: Spontaneous
  Country: IT (occurrence: IT)
  Receive Date: 20140213
  Receipt Date: 20140213
  Transmission Date: 20141002
  Serious: Yes (Other)
  Sender: FDA-Public Use
  Company Number: PHHY2014IT017216

PATIENT
  Age: 78 Year
  Sex: Male

DRUGS (2)
  1. ACETYLSALICYLIC ACID [Suspect]
     Dosage: 100 MG, QD
     Route: 048
     Dates: start: 20130101, end: 20131223
  2. PLAVIX [Suspect]
     Dosage: 75 MG, QD
     Route: 048
     Dates: start: 20130101, end: 20131223

REACTIONS (1)
  - Epistaxis [Unknown]
